FAERS Safety Report 5569287-6 (Version None)
Quarter: 2007Q4

REPORT INFORMATION
  Report Type: 
  Country: None (occurrence: None)
  Receive Date: 20071220
  Receipt Date: 20071011
  Transmission Date: 20080405
  Serious: No
  Sender: FDA-Public Use
  Company Number: A0687173A

PATIENT
  Age: 84 Year
  Sex: Male

DRUGS (5)
  1. AVODART [Suspect]
     Dosage: .5MG PER DAY
     Route: 048
     Dates: start: 20070501
  2. CENTRUM [Concomitant]
  3. VITAMIN B-12 [Concomitant]
  4. ZESTORETIC [Concomitant]
  5. LIPITOR [Concomitant]

REACTIONS (3)
  - ERECTILE DYSFUNCTION [None]
  - ERYTHEMA [None]
  - PENIS DISORDER [None]
